FAERS Safety Report 10803795 (Version 1)
Quarter: 2015Q1

REPORT INFORMATION
  Report Type: Report from Study
  Country: US (occurrence: US)
  Receive Date: 20150217
  Receipt Date: 20150217
  Transmission Date: 20150721
  Serious: Yes (Other)
  Sender: FDA-Public Use
  Company Number: US-CELGENE-163-21660-11061139

PATIENT

DRUGS (4)
  1. CARBOPLATIN. [Suspect]
     Active Substance: CARBOPLATIN
     Indication: NON-SMALL CELL LUNG CANCER
     Dosage: AUC 6
     Route: 065
  2. BEVACIZUMAB [Suspect]
     Active Substance: BEVACIZUMAB
     Indication: NON-SMALL CELL LUNG CANCER
     Route: 065
  3. BEVACIZUMAB [Suspect]
     Active Substance: BEVACIZUMAB
     Route: 065
  4. ABRAXANE [Suspect]
     Active Substance: PACLITAXEL
     Indication: NON-SMALL CELL LUNG CANCER
     Dosage: 100 MILLIGRAM/SQ. METER
     Route: 041

REACTIONS (42)
  - Amnesia [Unknown]
  - Liver function test abnormal [Unknown]
  - Neutrophil count decreased [Unknown]
  - Proteinuria [Unknown]
  - Haemoglobin decreased [Unknown]
  - Decreased appetite [Unknown]
  - Infection [Unknown]
  - Hyponatraemia [Unknown]
  - Neutropenia [Unknown]
  - Dyspepsia [Unknown]
  - Hypokalaemia [Unknown]
  - Alanine aminotransferase abnormal [Unknown]
  - Pulmonary embolism [Unknown]
  - Vomiting [Unknown]
  - Deep vein thrombosis [Unknown]
  - Non-small cell lung cancer [Unknown]
  - Blood alkaline phosphatase abnormal [Unknown]
  - Pain [Unknown]
  - Diverticular perforation [Unknown]
  - Gastrointestinal haemorrhage [Unknown]
  - Hypertension [Unknown]
  - White blood cell count decreased [Unknown]
  - Alopecia [Unknown]
  - Anaemia [Unknown]
  - Diarrhoea [Unknown]
  - Weight decreased [Unknown]
  - Epistaxis [Unknown]
  - Diverticulitis [Unknown]
  - Pancreatic carcinoma [Unknown]
  - Bone disorder [Unknown]
  - Platelet count decreased [Unknown]
  - Nausea [Unknown]
  - Renal impairment [Unknown]
  - Dehydration [Unknown]
  - Constipation [Unknown]
  - Fatigue [Unknown]
  - Neuropathy peripheral [Unknown]
  - Aspartate aminotransferase abnormal [Unknown]
  - Blood magnesium decreased [Unknown]
  - Blood bilirubin abnormal [Unknown]
  - Dysgeusia [Unknown]
  - Rash [Unknown]
